FAERS Safety Report 5811190-8 (Version None)
Quarter: 2008Q3

REPORT INFORMATION
  Report Type: 
  Country: None (occurrence: None)
  Receive Date: 20080716
  Receipt Date: 20080714
  Transmission Date: 20090109
  Serious: Yes (Hospitalization)
  Sender: FDA-Public Use
  Company Number: US-AMGEN-US289530

PATIENT
  Sex: Female
  Weight: 64.9 kg

DRUGS (7)
  1. NEULASTA [Suspect]
     Indication: CHEMOTHERAPY
     Route: 058
     Dates: start: 20080528
  2. CYTOXAN [Suspect]
     Dates: start: 20080527
  3. TAXOTERE [Suspect]
     Dates: start: 20080527
  4. DOXORUBICIN HYDROCHLORIDE [Suspect]
     Dates: start: 20080527
  5. KYTRIL [Concomitant]
  6. COMPAZINE [Concomitant]
  7. DECADRON [Concomitant]

REACTIONS (2)
  - FEBRILE NEUTROPENIA [None]
  - NEUTROPENIA [None]
